FAERS Safety Report 9982259 (Version 1)
Quarter: 2014Q1

REPORT INFORMATION
  Report Type: Report from Study
  Country: US (occurrence: US)
  Receive Date: 20140307
  Receipt Date: 20140307
  Transmission Date: 20141002
  Serious: No
  Sender: FDA-Public Use
  Company Number: US-ABBVIE-13P-163-1178042-00

PATIENT
  Age: 53 Year
  Sex: Male
  Weight: 90.8 kg

DRUGS (14)
  1. HUMIRA [Suspect]
     Indication: PSORIASIS
     Dates: start: 20131101, end: 20131101
  2. HUMIRA [Suspect]
     Dates: start: 20131108, end: 20131108
  3. HUMIRA [Suspect]
     Dates: start: 20131122
  4. AMLODIPINE [Concomitant]
     Indication: HYPERTENSION
  5. ATORVASTATIN [Concomitant]
     Indication: BLOOD CHOLESTEROL INCREASED
  6. HYDROCHLOROTHIAZIDE [Concomitant]
     Indication: LOCAL SWELLING
  7. POTASSIUM [Concomitant]
     Indication: BLOOD POTASSIUM DECREASED
  8. CLONAZEPAM [Concomitant]
     Indication: ANXIETY
  9. FUROSEMIDE [Concomitant]
     Indication: LOCAL SWELLING
  10. HYDROXYZINE [Concomitant]
     Indication: PRURITUS
  11. HYDROXYZINE [Concomitant]
     Indication: PSORIASIS
  12. DOXEPIN HCL [Concomitant]
     Indication: INSOMNIA
  13. TRIAMCINOLONE [Concomitant]
     Indication: PRODUCT USED FOR UNKNOWN INDICATION
  14. VITAMIN PILLS [Concomitant]
     Indication: PRODUCT USED FOR UNKNOWN INDICATION

REACTIONS (2)
  - Psoriasis [Not Recovered/Not Resolved]
  - Pruritus [Not Recovered/Not Resolved]
